FAERS Safety Report 9376001 (Version 2)
Quarter: 2013Q2

REPORT INFORMATION
  Report Type: Spontaneous
  Country: US (occurrence: None)
  Receive Date: 20130628
  Receipt Date: 20130628
  Transmission Date: 20140414
  Serious: Yes (Death, Other)
  Sender: FDA-Public Use
  Company Number: None

PATIENT
  Age: 84 Year
  Sex: Male
  Weight: 113.4 kg

DRUGS (1)
  1. AMIODARONE [Suspect]

REACTIONS (1)
  - Pulmonary toxicity [None]
